FAERS Safety Report 25798256 (Version 1)
Quarter: 2025Q3

REPORT INFORMATION
  Report Type: Other
  Country: US (occurrence: US)
  Receive Date: 20250912
  Receipt Date: 20250912
  Transmission Date: 20251020
  Serious: Yes (Other)
  Sender: MADRIGAL PHARMACEUTICALS
  Company Number: US-MADRIGAL PHARMACEUTICALS, INC-2025REZ2128

PATIENT

DRUGS (13)
  1. REZDIFFRA [Suspect]
     Active Substance: RESMETIROM
     Indication: Metabolic dysfunction-associated steatohepatitis
     Dosage: 80 MILLIGRAM, QD
     Route: 048
     Dates: start: 202412, end: 202503
  2. REZDIFFRA [Suspect]
     Active Substance: RESMETIROM
     Dosage: 80 MILLIGRAM, QD
     Route: 048
     Dates: start: 202503
  3. ROSUVASTATIN [Suspect]
     Active Substance: ROSUVASTATIN
     Indication: Blood cholesterol abnormal
     Dosage: 20 MILLIGRAM, QD
     Route: 065
     Dates: end: 20250331
  4. SYNTHROID [Concomitant]
     Active Substance: LEVOTHYROXINE SODIUM
     Indication: Hypothyroidism
  5. OTEZLA [Concomitant]
     Active Substance: APREMILAST
     Indication: Psoriatic arthropathy
  6. LOSARTAN [Concomitant]
     Active Substance: LOSARTAN
     Indication: Hypertension
  7. LOSARTAN [Concomitant]
     Active Substance: LOSARTAN
  8. XARELTO [Concomitant]
     Active Substance: RIVAROXABAN
     Indication: Atrial fibrillation
  9. FAMOTIDINE [Concomitant]
     Active Substance: FAMOTIDINE
     Indication: Gastrooesophageal reflux disease
  10. METFORMIN [Concomitant]
     Active Substance: METFORMIN HYDROCHLORIDE
     Indication: Diabetes mellitus
  11. TRULICITY [Concomitant]
     Active Substance: DULAGLUTIDE
     Indication: Diabetes mellitus
  12. CORTISONE [Concomitant]
     Active Substance: CORTISONE
     Indication: Pruritus
  13. CLOBETASONE [Concomitant]
     Active Substance: CLOBETASONE
     Indication: Pruritus

REACTIONS (10)
  - Metabolic dysfunction-associated liver disease [Unknown]
  - Disease progression [Unknown]
  - Muscle spasms [Recovering/Resolving]
  - Weight decreased [Unknown]
  - Blood thyroid stimulating hormone abnormal [Unknown]
  - Blood pressure decreased [Unknown]
  - Blood cholesterol abnormal [Unknown]
  - Drug interaction [Unknown]
  - Pruritus [Recovering/Resolving]
  - Intentional product misuse [Unknown]

NARRATIVE: CASE EVENT DATE: 20241201
